FAERS Safety Report 16568947 (Version 1)
Quarter: 2019Q3

REPORT INFORMATION
  Report Type: Spontaneous
  Country: DE (occurrence: DE)
  Receive Date: 20190713
  Receipt Date: 20190713
  Transmission Date: 20191004
  Serious: Yes (Hospitalization)
  Sender: FDA-Public Use
  Company Number: DE-TEVA-2019-DE-1075826

PATIENT
  Age: 81 Year
  Sex: Female

DRUGS (19)
  1. CANDESARTAN. [Concomitant]
     Active Substance: CANDESARTAN
     Dosage: 8 MG, 2-0-2-0
  2. FERRLECIT 40MG [Concomitant]
     Dosage: 40 MG, ON DIALYSIS; 1-0-0-0; MO, AMPOULES
     Route: 042
  3. GLURENORM [Concomitant]
     Active Substance: GLIQUIDONE
     Dosage: NK MG, 1-0-0-0
  4. IBUPROFEN. [Concomitant]
     Active Substance: IBUPROFEN
     Dosage: 600 MG, DEMAND
  5. METAMIZOL [Concomitant]
     Active Substance: METAMIZOLE SODIUM
     Dosage: NK MG, 30 DROPS IF NEEDED, DROPS
  6. EPOETIN ALFA HEXAL 2000I.E./1ML [Concomitant]
     Dosage: 2000 IU, ON DIALYSIS; 1-0-0-0 MON, WED, FRI,
     Route: 042
  7. METOPROLOL. [Suspect]
     Active Substance: METOPROLOL
     Dosage: 47.5 MG, 2-0-1-0
  8. OSVAREN [Concomitant]
     Active Substance: CALCIUM ACETATE\MAGNESIUM CARBONATE
     Dosage: NK MG, 2-2-2-0
  9. MIMPARA 30MG [Concomitant]
     Dosage: 30 MG, 0-0-1-0
  10. ASS 100 [Concomitant]
     Active Substance: ASPIRIN
     Dosage: 100 MG, 1-0-0-0
  11. PANTOPRAZOL [Concomitant]
     Active Substance: PANTOPRAZOLE SODIUM
     Dosage: 40 MG, 1-0-0-0
  12. CLOPIDOGREL [Concomitant]
     Active Substance: CLOPIDOGREL BISULFATE
     Dosage: 75 MG, 0-0-1-0
  13. ENALAPRIL [Concomitant]
     Active Substance: ENALAPRIL
     Dosage: 10 MG, 1-0-1-0
  14. RENVELA [Concomitant]
     Active Substance: SEVELAMER CARBONATE
     Dosage: 800 MG, 1-1-1-0
  15. SIMVASTATIN. [Concomitant]
     Active Substance: SIMVASTATIN
     Dosage: 80 MG, 0-0-0.5-0
  16. NITRENDIPIN [Concomitant]
     Active Substance: NITRENDIPINE
     Dosage: 10 MG, 1-1-1-1
  17. DREISAVIT N [Concomitant]
     Dosage: NK MG, OF, DO, WITH, IN
  18. DEKRISTOL [Concomitant]
     Active Substance: CHOLECALCIFEROL
     Dosage: 20000 IU, ON DIALYSIS; MON/1X MONTH
  19. NITROLINGUAL [Concomitant]
     Active Substance: NITROGLYCERIN
     Dosage: NK MG, 0-0-1-0

REACTIONS (3)
  - Mobility decreased [Unknown]
  - Pain in extremity [Unknown]
  - Condition aggravated [Unknown]
